FAERS Safety Report 6586097-1 (Version None)
Quarter: 2010Q1

REPORT INFORMATION
  Report Type: 
  Country: None (occurrence: None)
  Receive Date: 20100217
  Receipt Date: 20090224
  Transmission Date: 20100710
  Serious: No
  Sender: FDA-Public Use
  Company Number: US-ALLERGAN-0900950US

PATIENT
  Age: 43 Year
  Sex: Female
  Weight: 58.957 kg

DRUGS (1)
  1. BOTOX COSMETIC [Suspect]
     Indication: SKIN WRINKLING
     Dosage: 21 UNITS, SINGLE
     Dates: start: 20090130, end: 20090130

REACTIONS (1)
  - FACIAL PAIN [None]
